FAERS Safety Report 4393452-7 (Version None)
Quarter: 2004Q3

REPORT INFORMATION
  Report Type: 
  Country: None (occurrence: None)
  Receive Date: 20040707
  Receipt Date: 20040707
  Transmission Date: 20050211
  Serious: Yes (Other)
  Sender: FDA-Public Use
  Company Number: None

PATIENT
  Age: 36 Year
  Sex: Male
  Weight: 81.6475 kg

DRUGS (3)
  1. CLOZARIL [Suspect]
     Indication: SCHIZOPHRENIA, PARANOID TYPE
     Dosage: 200 MG PO HS
     Route: 048
     Dates: start: 20040406, end: 20040602
  2. CLOZARIL [Suspect]
     Dosage: 50 MG PO Q AM
     Route: 048
     Dates: start: 20040406, end: 20040602
  3. CLOZARIL [Suspect]
     Dosage: 50 MG PO Q AM
     Route: 048
     Dates: start: 20040614

REACTIONS (5)
  - BLOOD PRESSURE INCREASED [None]
  - HEART RATE INCREASED [None]
  - LETHARGY [None]
  - PYREXIA [None]
  - VIRAL INFECTION [None]
